FAERS Safety Report 6422167-6 (Version None)
Quarter: 2009Q4

REPORT INFORMATION
  Report Type: 
  Country: None (occurrence: None)
  Receive Date: 20091030
  Receipt Date: 20091017
  Transmission Date: 20100525
  Serious: Yes (Hospitalization)
  Sender: FDA-Public Use
  Company Number: PHHY2009CR45224

PATIENT
  Age: 77 Year
  Sex: Male

DRUGS (1)
  1. EXFORGE [Suspect]
     Indication: HYPERTENSION
     Dosage: 320/10MG, UNK

REACTIONS (4)
  - DECREASED APPETITE [None]
  - HIATUS HERNIA [None]
  - JAUNDICE [None]
  - PEPTIC ULCER [None]
